FAERS Safety Report 5346099-X (Version None)
Quarter: 2007Q2

REPORT INFORMATION
  Report Type: 
  Country: None (occurrence: None)
  Receive Date: 20070420
  Receipt Date: 20061220
  Transmission Date: 20071010
  Serious: No
  Sender: FDA-Public Use
  Company Number: 2006-US-000136

PATIENT
  Age: 10 Year
  Sex: Male
  Weight: 13 kg

DRUGS (5)
  1. INCRELEX [Suspect]
     Indication: INSULIN-LIKE GROWTH FACTOR DECREASED
     Dosage: SEE IMAGE
     Route: 058
     Dates: start: 20061031, end: 20061110
  2. INCRELEX [Suspect]
     Indication: INSULIN-LIKE GROWTH FACTOR DECREASED
     Dosage: SEE IMAGE
     Route: 058
     Dates: start: 20061111, end: 20061111
  3. CALCITROL (CALCIUM CARBONATE, ERGOCALCIFEROL,RETINOL) [Concomitant]
  4. AZITHROMYCIN [Concomitant]
  5. AUGMENTIN /00756801/ (AMOXICILLIN SODIUM, CLAVULANATE POTASSIUM) [Concomitant]

REACTIONS (1)
  - BLOOD GLUCOSE INCREASED [None]
